FAERS Safety Report 8160033-9 (Version None)
Quarter: 2012Q1

REPORT INFORMATION
  Report Type: 
  Country: None (occurrence: None)
  Receive Date: 20120223
  Receipt Date: 20120215
  Transmission Date: 20120608
  Serious: Yes (Other)
  Sender: FDA-Public Use
  Company Number: ZA-GLAXOSMITHKLINE-B0782394A

PATIENT
  Age: 3 Month
  Sex: Male

DRUGS (1)
  1. CEFUROXIME [Suspect]
     Indication: UPPER RESPIRATORY TRACT INFECTION
     Dosage: 3.5ML PER DAY
     Route: 065
     Dates: start: 20120214, end: 20120214

REACTIONS (1)
  - CONVULSION [None]
